FAERS Safety Report 12396492 (Version 2)
Quarter: 2016Q3

REPORT INFORMATION
  Report Type: Spontaneous
  Country: US (occurrence: US)
  Receive Date: 20160524
  Receipt Date: 20160901
  Transmission Date: 20161109
  Serious: Yes (Other)
  Sender: FDA-Public Use
  Company Number: US-WEST-WARD PHARMACEUTICALS CORP.-US-H14001-16-00788

PATIENT
  Age: 71 Year
  Sex: Male

DRUGS (5)
  1. RECOMBINANT TISSUE PLASMINOGEN [Concomitant]
     Indication: ISCHAEMIC STROKE
     Route: 065
  2. NICARDIPINE [Suspect]
     Active Substance: NICARDIPINE
     Route: 041
  3. SUCCINYLCHOLINE [Concomitant]
     Active Substance: SUCCINYLCHOLINE
     Indication: ENDOTRACHEAL INTUBATION
  4. ETOMIDATE. [Concomitant]
     Active Substance: ETOMIDATE
     Indication: ENDOTRACHEAL INTUBATION
  5. NICARDIPINE [Suspect]
     Active Substance: NICARDIPINE
     Indication: HYPERTENSION
     Route: 041

REACTIONS (2)
  - Atrioventricular block [Unknown]
  - Bradycardia [Unknown]
